FAERS Safety Report 24934019 (Version 1)
Quarter: 2025Q1

REPORT INFORMATION
  Report Type: Report from Study
  Country: US (occurrence: US)
  Receive Date: 20250206
  Receipt Date: 20250206
  Transmission Date: 20250409
  Serious: Yes (Other)
  Sender: EXELIXIS
  Company Number: US-EXELIXIS-CABO-24077180

PATIENT
  Sex: Female

DRUGS (14)
  1. CABOMETYX [Suspect]
     Active Substance: CABOZANTINIB S-MALATE
     Indication: Hepatocellular carcinoma
     Dosage: 40 MG, QD
     Dates: start: 20240321
  2. CABOMETYX [Suspect]
     Active Substance: CABOZANTINIB S-MALATE
     Indication: Renal cancer
  3. LEVOTHYROXINE [Concomitant]
     Active Substance: LEVOTHYROXINE
  4. ATENOLOL [Concomitant]
     Active Substance: ATENOLOL
  5. IRBESARTAN [Concomitant]
     Active Substance: IRBESARTAN
  6. ELIQUIS [Concomitant]
     Active Substance: APIXABAN
  7. CREON [Concomitant]
     Active Substance: PANCRELIPASE AMYLASE\PANCRELIPASE LIPASE\PANCRELIPASE PROTEASE
  8. ROSUVASTATIN [Concomitant]
     Active Substance: ROSUVASTATIN
  9. JANUVIA [Concomitant]
     Active Substance: SITAGLIPTIN PHOSPHATE
  10. NIFEDIPINE [Concomitant]
     Active Substance: NIFEDIPINE
  11. TRESIBA [Concomitant]
     Active Substance: INSULIN DEGLUDEC
  12. VITAMINS [Concomitant]
     Active Substance: VITAMINS
  13. CALCIUM CHEWS [Concomitant]
  14. NOVOLOG [Concomitant]
     Active Substance: INSULIN ASPART

REACTIONS (8)
  - Pain in extremity [Unknown]
  - Skin ulcer [Unknown]
  - Pruritus [Not Recovered/Not Resolved]
  - Dry skin [Not Recovered/Not Resolved]
  - Constipation [Unknown]
  - Tremor [Not Recovered/Not Resolved]
  - Discomfort [Unknown]
  - Off label use [Unknown]
